FAERS Safety Report 24313174 (Version 1)
Quarter: 2024Q3

REPORT INFORMATION
  Report Type: Spontaneous
  Country: US (occurrence: US)
  Receive Date: 20240912
  Receipt Date: 20240912
  Transmission Date: 20241017
  Serious: Yes (Other)
  Sender: CMP PHARMA
  Company Number: US-CMP PHARMA-2024CMP00052

PATIENT
  Age: 58 Year
  Sex: Female

DRUGS (4)
  1. TRIAMCINOLONE [Suspect]
     Active Substance: TRIAMCINOLONE
     Indication: Alopecia areata
     Dosage: 9 CC, 2.5 MG/CC, ACROSS THE SCALP; 4 TREATMENTS
     Route: 026
  2. TRIAMCINOLONE [Suspect]
     Active Substance: TRIAMCINOLONE
     Dosage: 10 MG OVER 4 CC; ^NEXT 10 MONTHS^
     Dates: start: 202210
  3. CLOBETASOL [Concomitant]
     Active Substance: CLOBETASOL
     Indication: Alopecia areata
     Route: 061
  4. MINOXIDIL [Concomitant]
     Active Substance: MINOXIDIL
     Indication: Alopecia areata
     Route: 061

REACTIONS (1)
  - Central serous chorioretinopathy [Recovered/Resolved]
